FAERS Safety Report 7438298-8 (Version None)
Quarter: 2011Q2

REPORT INFORMATION
  Report Type: 
  Country: None (occurrence: None)
  Receive Date: 20110419
  Receipt Date: 20110405
  Transmission Date: 20111010
  Serious: Yes (Death)
  Sender: FDA-Public Use
  Company Number: 030666

PATIENT
  Age: 52 Year
  Sex: Female

DRUGS (3)
  1. LACOSAMIDE [Suspect]
     Dosage: (PARENTERAL)
     Route: 051
  2. ZONISAMIDE [Suspect]
     Dosage: (PARENTERAL)
     Route: 051
  3. TOPIRAMATE [Suspect]
     Dosage: (PARENTERAL)
     Route: 051

REACTIONS (1)
  - DEATH [None]
